FAERS Safety Report 17287195 (Version 2)
Quarter: 2020Q1

REPORT INFORMATION
  Report Type: Spontaneous
  Country: US (occurrence: US)
  Receive Date: 20200120
  Receipt Date: 20200228
  Transmission Date: 20200409
  Serious: Yes (Hospitalization)
  Sender: FDA-Public Use
  Company Number: US-ROCHE-2526884

PATIENT
  Age: 80 Year
  Sex: Female

DRUGS (24)
  1. ESBRIET [Suspect]
     Active Substance: PIRFENIDONE
     Indication: IDIOPATHIC PULMONARY FIBROSIS
     Route: 048
     Dates: start: 20191108
  2. ELIQUIS [Concomitant]
     Active Substance: APIXABAN
  3. DICLOFENAC [Concomitant]
     Active Substance: DICLOFENAC
  4. SYMBICORT [Concomitant]
     Active Substance: BUDESONIDE\FORMOTEROL FUMARATE DIHYDRATE
  5. ACYCLOVIR [ACICLOVIR] [Concomitant]
     Active Substance: ACYCLOVIR
  6. FUROSEMIDE. [Concomitant]
     Active Substance: FUROSEMIDE
  7. LEVOFLOXACIN. [Concomitant]
     Active Substance: LEVOFLOXACIN
  8. METHYPRED [Concomitant]
  9. ENALAPRIL [Concomitant]
     Active Substance: ENALAPRIL
  10. FAMOTIDIN [Concomitant]
     Active Substance: FAMOTIDINE
  11. ATORVASTATIN [Concomitant]
     Active Substance: ATORVASTATIN
  12. GABAPENTIN. [Concomitant]
     Active Substance: GABAPENTIN
  13. HUMALOG [Concomitant]
     Active Substance: INSULIN LISPRO
  14. OFLOXACIN. [Concomitant]
     Active Substance: OFLOXACIN
  15. ESBRIET [Suspect]
     Active Substance: PIRFENIDONE
     Route: 048
     Dates: start: 20191107
  16. GLYBURIDE. [Concomitant]
     Active Substance: GLYBURIDE
  17. LEVOTHYROXIN [Concomitant]
     Active Substance: LEVOTHYROXINE
  18. DOK [Concomitant]
     Active Substance: DOCUSATE SODIUM
  19. AZITHROMYCIN ANHYDROUS. [Concomitant]
     Active Substance: AZITHROMYCIN ANHYDROUS
  20. FLUCONAZOLE. [Concomitant]
     Active Substance: FLUCONAZOLE
  21. DILTIAZEM. [Concomitant]
     Active Substance: DILTIAZEM
  22. METFORMIN [Concomitant]
     Active Substance: METFORMIN HYDROCHLORIDE
     Route: 065
  23. PREDNISOLONE. [Concomitant]
     Active Substance: PREDNISOLONE
  24. PREDNISONE. [Concomitant]
     Active Substance: PREDNISONE

REACTIONS (3)
  - Bronchitis [Unknown]
  - Pericardial effusion [Unknown]
  - Pulmonary oedema [Unknown]

NARRATIVE: CASE EVENT DATE: 202001
